FAERS Safety Report 17156200 (Version 1)
Quarter: 2019Q4

REPORT INFORMATION
  Report Type: Spontaneous
  Country: PL (occurrence: PL)
  Receive Date: 20191216
  Receipt Date: 20191216
  Transmission Date: 20200122
  Serious: Yes (Other)
  Sender: FDA-Public Use
  Company Number: PL-AUROBINDO-AUR-APL-2019-104937

PATIENT
  Age: 68 Year
  Sex: Male

DRUGS (9)
  1. GABAPENTIN. [Suspect]
     Active Substance: GABAPENTIN
     Dosage: 300 MILLIGRAM, 3 TIMES A DAY (900 MG DAILY)
     Route: 065
  2. GABAPENTIN. [Suspect]
     Active Substance: GABAPENTIN
     Indication: PAIN IN EXTREMITY
     Dosage: 300 MILLIGRAM, ONCE A DAY (AT NIGHT)
     Route: 065
  3. TRAMADOL HYDROCHLORID/PARACETAMOL [Suspect]
     Active Substance: ACETAMINOPHEN\TRAMADOL HYDROCHLORIDE
     Dosage: 1 DOSAGE FORM, FOUR TIMES/DAY
     Route: 065
  4. BENFOTIAMINE [Suspect]
     Active Substance: BENFOTIAMINE
     Indication: PAIN IN EXTREMITY
     Dosage: 150 MILLIGRAM, ONCE A DAY
     Route: 065
  5. TRAMADOL HYDROCHLORID/PARACETAMOL [Suspect]
     Active Substance: ACETAMINOPHEN\TRAMADOL HYDROCHLORIDE
     Indication: PAIN IN EXTREMITY
     Dosage: 1 DOSAGE FORM, UNKNOWN (AD-HOC)
     Route: 065
  6. AMITRIPTYLINE [Suspect]
     Active Substance: AMITRIPTYLINE
     Indication: PAIN IN EXTREMITY
     Dosage: 10 MILLIGRAM, UNK (INITIAL DOSE AT BED TIME)
     Route: 065
  7. THIOCTIC ACID [Suspect]
     Active Substance: .ALPHA.-LIPOIC ACID
     Indication: PAIN IN EXTREMITY
     Dosage: 600 MILLIGRAM, ONCE A DAY(FIRST 7 DAYS BY INTRAVENOUS INFUSION AND THEN ORALLY)
     Route: 065
  8. AMITRIPTYLINE [Suspect]
     Active Substance: AMITRIPTYLINE
     Dosage: 25 MILLIGRAM, UNK (NIGHT TIME)
     Route: 065
  9. AMITRIPTYLINE [Suspect]
     Active Substance: AMITRIPTYLINE
     Dosage: 10 MILLIGRAM, UNK (NIGHT TIME)
     Route: 065

REACTIONS (10)
  - Fatigue [Unknown]
  - Areflexia [Unknown]
  - Paraesthesia [Unknown]
  - Constipation [Unknown]
  - Dry mouth [Unknown]
  - Diabetic neuropathy [Unknown]
  - Disturbance in attention [Unknown]
  - Muscle contractions involuntary [Unknown]
  - Glycosylated haemoglobin increased [Unknown]
  - Drug ineffective [Unknown]
